FAERS Safety Report 9815316 (Version 2)
Quarter: 2014Q1

REPORT INFORMATION
  Report Type: Spontaneous
  Country: US (occurrence: US)
  Receive Date: 20140114
  Receipt Date: 20140114
  Transmission Date: 20141002
  Serious: Yes (Other)
  Sender: FDA-Public Use
  Company Number: CHPA2014US000562

PATIENT
  Age: 62 Year
  Sex: Male

DRUGS (1)
  1. VOLTAREN GEL [Suspect]
     Route: 065

REACTIONS (2)
  - Transient global amnesia [Unknown]
  - Accidental exposure to product [Unknown]
